FAERS Safety Report 6243580-6 (Version None)
Quarter: 2009Q2

REPORT INFORMATION
  Report Type: 
  Country: None (occurrence: None)
  Receive Date: 20090624
  Receipt Date: 20090127
  Transmission Date: 20091009
  Serious: Yes (Hospitalization, Other)
  Sender: FDA-Public Use
  Company Number: US-PFIZER INC-2008067002

PATIENT
  Sex: Male
  Weight: 99.79 kg

DRUGS (13)
  1. LIPITOR [Suspect]
     Indication: HYPERLIPIDAEMIA
     Dosage: 80 MG, 1X/DAY
     Route: 048
     Dates: start: 19980101
  2. LIPITOR [Suspect]
     Dosage: 40 MG, 1X/DAY
     Dates: start: 20020909
  3. LYRICA [Suspect]
     Indication: BACK PAIN
     Dosage: 100 MG, 2X/DAY
     Route: 048
     Dates: start: 19980101
  4. LYRICA [Suspect]
     Indication: MUSCLE SPASMS
     Dosage: 150 MG, 1X/DAY
     Dates: start: 20051125
  5. DAYPRO [Suspect]
     Indication: OSTEOARTHRITIS
     Route: 048
     Dates: end: 20080731
  6. NEURONTIN [Suspect]
     Indication: BACK PAIN
  7. NEURONTIN [Suspect]
     Indication: MUSCLE SPASMS
  8. CARDURA [Suspect]
     Indication: HYPERTENSION
  9. TEVETEN HCT [Suspect]
     Indication: HYPERTENSION
     Dosage: 600MG/12.5MG BID EVERY DAY TDD:1200MG/2
     Dates: end: 20080731
  10. ZANTAC [Suspect]
     Dates: end: 20080731
  11. ZETIA [Suspect]
     Indication: BLOOD CHOLESTEROL INCREASED
     Dates: end: 20080731
  12. TOPROL-XL [Concomitant]
  13. TRICOR [Concomitant]

REACTIONS (5)
  - FALL [None]
  - HEAD DISCOMFORT [None]
  - LOSS OF CONSCIOUSNESS [None]
  - MOVEMENT DISORDER [None]
  - RENAL FAILURE [None]
